FAERS Safety Report 20561544 (Version 2)
Quarter: 2022Q1

REPORT INFORMATION
  Report Type: Report from Study
  Country: US (occurrence: US)
  Receive Date: 20220307
  Receipt Date: 20220311
  Transmission Date: 20220423
  Serious: Yes (Other)
  Sender: FDA-Public Use
  Company Number: US-ALLERGAN-2206777US

PATIENT
  Sex: Male

DRUGS (11)
  1. ATOGEPANT [Suspect]
     Active Substance: ATOGEPANT
     Indication: Migraine
     Dosage: 60 MG, QD
     Route: 048
     Dates: start: 20220105, end: 202201
  2. CLONAZEPAM [Concomitant]
     Active Substance: CLONAZEPAM
     Indication: Pain
     Dosage: 1 MG ONE DAY, 2.5 MG NEXT DAY AND AS NEEDED
  3. CLONAZEPAM [Concomitant]
     Active Substance: CLONAZEPAM
     Indication: Headache
  4. LASIX [Concomitant]
     Active Substance: FUROSEMIDE
     Indication: Polyuria
     Dosage: 20 MG THREE TIMES A WEEK
  5. LASIX [Concomitant]
     Active Substance: FUROSEMIDE
     Indication: Oedema peripheral
  6. VALSARTAN [Concomitant]
     Active Substance: VALSARTAN
     Indication: Hypertension
     Dosage: 320 MG
  7. TRAZODONE [Concomitant]
     Active Substance: TRAZODONE HYDROCHLORIDE
     Indication: Sleep disorder
     Dosage: 100 MG, QHS
  8. TACROLIMUS [Concomitant]
     Active Substance: TACROLIMUS
     Indication: Dermatitis
     Dosage: UNK, PRN
  9. VITAMIN D [Concomitant]
     Active Substance: VITAMIN D NOS
  10. VITAMINS [Concomitant]
     Active Substance: VITAMINS
  11. KLONOPIN [Concomitant]
     Active Substance: CLONAZEPAM
     Indication: Headache
     Dosage: 2 MG, QD
     Route: 048

REACTIONS (3)
  - Rash [Recovered/Resolved]
  - Pruritus [Recovered/Resolved]
  - Drug ineffective [Unknown]

NARRATIVE: CASE EVENT DATE: 20220101
